FAERS Safety Report 25136349 (Version 1)
Quarter: 2025Q1

REPORT INFORMATION
  Report Type: Spontaneous
  Country: CH (occurrence: CH)
  Receive Date: 20250328
  Receipt Date: 20250328
  Transmission Date: 20250408
  Serious: Yes (Other)
  Sender: MERCK SHARP & DOHME LLC
  Company Number: CH-009507513-2269433

PATIENT

DRUGS (2)
  1. PEMBROLIZUMAB [Suspect]
     Active Substance: PEMBROLIZUMAB
     Indication: Metastatic malignant melanoma
     Dates: start: 20231009
  2. LENVATINIB [Suspect]
     Active Substance: LENVATINIB
     Indication: Metastatic malignant melanoma
     Route: 048
     Dates: start: 20231009

REACTIONS (11)
  - Blood loss anaemia [Unknown]
  - Anaemia postoperative [Unknown]
  - Adrenal insufficiency [Unknown]
  - Malignant neoplasm progression [Unknown]
  - Lymphadenopathy mediastinal [Unknown]
  - Pancreatitis [Unknown]
  - Hilar lymphadenopathy [Unknown]
  - Coeliac disease [Unknown]
  - Ophthalmic herpes zoster [Unknown]
  - Product use issue [Unknown]
  - Sarcoid-like reaction [Unknown]

NARRATIVE: CASE EVENT DATE: 20231009
